FAERS Safety Report 5650552-9 (Version None)
Quarter: 2008Q1

REPORT INFORMATION
  Report Type: 
  Country: None (occurrence: None)
  Receive Date: 20080304
  Receipt Date: 20080304
  Transmission Date: 20080703
  Serious: Yes (Hospitalization)
  Sender: FDA-Public Use
  Company Number: None

PATIENT

DRUGS (1)
  1. ZETIA [Suspect]
     Indication: DYSLIPIDAEMIA
     Dosage: DAILY
     Dates: start: 20040101, end: 20050401

REACTIONS (2)
  - CHOLELITHIASIS [None]
  - PANCREATITIS [None]
